FAERS Safety Report 13328293 (Version 1)
Quarter: 2017Q1

REPORT INFORMATION
  Report Type: Spontaneous
  Country: US (occurrence: US)
  Receive Date: 20170310
  Receipt Date: 20170310
  Transmission Date: 20170428
  Serious: Yes (Death, Hospitalization)
  Sender: FDA-Public Use
  Company Number: None

PATIENT
  Age: 47 Year
  Sex: Male
  Weight: 126.9 kg

DRUGS (11)
  1. IRON [Concomitant]
     Active Substance: IRON
  2. NADOLOL. [Concomitant]
     Active Substance: NADOLOL
  3. CALCIUM [Concomitant]
     Active Substance: CALCIUM
  4. HUMULIN N [Concomitant]
     Active Substance: INSULIN HUMAN
  5. ALBUTEROL INHALER [Concomitant]
     Active Substance: ALBUTEROL
  6. OXYCODONE [Concomitant]
     Active Substance: OXYCODONE
  7. XIFAXAN [Suspect]
     Active Substance: RIFAXIMIN
     Indication: HEPATIC ENCEPHALOPATHY
     Dosage: ?          QUANTITY:60 TABLET(S);?
     Route: 048
  8. FUROSEMIDE. [Concomitant]
     Active Substance: FUROSEMIDE
  9. SPIRONOLACTONE. [Concomitant]
     Active Substance: SPIRONOLACTONE
  10. NORTRIPTYLINE [Concomitant]
     Active Substance: NORTRIPTYLINE
  11. HUMULIN R [Concomitant]
     Active Substance: INSULIN HUMAN

REACTIONS (14)
  - Hypersomnia [None]
  - Dialysis [None]
  - Secretion discharge [None]
  - Peripheral swelling [None]
  - Dyspnoea [None]
  - Urinary retention [None]
  - Fall [None]
  - Erythema [None]
  - Movement disorder [None]
  - Skin wrinkling [None]
  - Renal failure [None]
  - Blood potassium increased [None]
  - Gait disturbance [None]
  - Skin fissures [None]

NARRATIVE: CASE EVENT DATE: 20161123
